FAERS Safety Report 7765267-0 (Version None)
Quarter: 2011Q3

REPORT INFORMATION
  Report Type: 
  Country: None (occurrence: None)
  Receive Date: 20110921
  Receipt Date: 20110914
  Transmission Date: 20111222
  Serious: Yes (Disabling)
  Sender: FDA-Public Use
  Company Number: AU-GLAXOSMITHKLINE-B0748479A

PATIENT
  Sex: Female

DRUGS (3)
  1. VARENICLINE TARTRATE [Suspect]
     Indication: PRODUCT USED FOR UNKNOWN INDICATION
     Route: 048
     Dates: start: 20060101
  2. ZYBAN [Suspect]
     Indication: PRODUCT USED FOR UNKNOWN INDICATION
     Route: 065
  3. HEART MEDICATION [Concomitant]
     Route: 065

REACTIONS (5)
  - ILL-DEFINED DISORDER [None]
  - CEREBROVASCULAR ACCIDENT [None]
  - AMNESIA [None]
  - TRANSIENT ISCHAEMIC ATTACK [None]
  - DISABILITY [None]
